FAERS Safety Report 9898871 (Version 2)
Quarter: 2014Q1

REPORT INFORMATION
  Report Type: Report from Study
  Country: CA (occurrence: CA)
  Receive Date: 20140214
  Receipt Date: 20140214
  Transmission Date: 20141002
  Serious: Yes (Hospitalization, Other)
  Sender: FDA-Public Use
  Company Number: CA-ABBVIE-14P-028-1187525-00

PATIENT
  Sex: Male

DRUGS (2)
  1. HUMIRA [Suspect]
     Indication: CROHN^S DISEASE
     Route: 058
     Dates: start: 20090801, end: 20131228
  2. METHOTREXATE [Concomitant]
     Indication: PRODUCT USED FOR UNKNOWN INDICATION

REACTIONS (7)
  - Crohn^s disease [Not Recovered/Not Resolved]
  - Malaise [Unknown]
  - Pain [Unknown]
  - Intestinal perforation [Unknown]
  - Unevaluable event [Unknown]
  - Arthritis enteropathic [Unknown]
  - Knee operation [Unknown]
